FAERS Safety Report 9173967 (Version 1)
Quarter: 2013Q1

REPORT INFORMATION
  Report Type: Spontaneous
  Country: US (occurrence: US)
  Receive Date: 20130320
  Receipt Date: 20130320
  Transmission Date: 20140127
  Serious: No
  Sender: FDA-Public Use
  Company Number: US-PFIZER INC-2013086470

PATIENT
  Sex: 0

DRUGS (3)
  1. NORVASC [Suspect]
     Dosage: UNK
  2. AMLODIPINE BESILATE [Interacting]
     Dosage: UNK
  3. ZOCOR [Interacting]
     Dosage: UNK

REACTIONS (1)
  - Drug interaction [Unknown]
